FAERS Safety Report 5235931-6 (Version None)
Quarter: 2007Q1

REPORT INFORMATION
  Report Type: 
  Country: None (occurrence: None)
  Receive Date: 20070212
  Receipt Date: 20070208
  Transmission Date: 20070707
  Serious: Yes (Death)
  Sender: FDA-Public Use
  Company Number: PHBS2007JP00816

PATIENT
  Age: 57 Year
  Sex: Male
  Weight: 102 kg

DRUGS (9)
  1. HUMALOG [Suspect]
     Indication: DIABETES MELLITUS
     Route: 058
     Dates: start: 20061227, end: 20070106
  2. MESTINON [Concomitant]
     Dosage: 180 MG/D
     Route: 048
     Dates: start: 20021206, end: 20070106
  3. ADALAT [Concomitant]
     Dosage: 60 MG/D
     Route: 048
     Dates: start: 20030107, end: 20070106
  4. DIOVAN [Concomitant]
     Dosage: 80 MG/D
     Route: 048
     Dates: start: 20030107, end: 20070106
  5. ASPIRIN [Concomitant]
     Dosage: 100 MG/D
     Route: 048
     Dates: start: 20041021, end: 20070106
  6. AMARYL [Concomitant]
     Dosage: 0.5 MG/D
     Route: 048
     Dates: start: 20040511, end: 20061220
  7. PROGRAF [Concomitant]
     Route: 048
     Dates: start: 20030601
  8. PREDONINE [Suspect]
     Indication: MYASTHENIA GRAVIS
     Dosage: 30 MG/D
     Route: 048
     Dates: start: 20021206, end: 20070106
  9. NEORAL [Suspect]
     Indication: MYASTHENIA GRAVIS
     Dosage: 300 MG/D
     Route: 048
     Dates: start: 20061115, end: 20070106

REACTIONS (11)
  - BLOOD PRESSURE DECREASED [None]
  - BLOOD PRESSURE DIASTOLIC INCREASED [None]
  - CARDIAC ARREST [None]
  - DEPRESSED LEVEL OF CONSCIOUSNESS [None]
  - DYSPNOEA [None]
  - HEART RATE INCREASED [None]
  - LIFE SUPPORT [None]
  - NASOPHARYNGITIS [None]
  - PYREXIA [None]
  - RESPIRATORY FAILURE [None]
  - SEPSIS [None]
